FAERS Safety Report 10229754 (Version 1)
Quarter: 2014Q2

REPORT INFORMATION
  Report Type: Report from Study
  Country: US (occurrence: US)
  Receive Date: 20140611
  Receipt Date: 20140611
  Transmission Date: 20141212
  Serious: No
  Sender: FDA-Public Use
  Company Number: PHEH2014US011614

PATIENT
  Age: 35 Year
  Sex: Male

DRUGS (1)
  1. TASIGNA [Suspect]
     Indication: CHRONIC MYELOID LEUKAEMIA
     Dosage: 300 MG, Q12H (02 DF, EVERY 12 HRS WITH WATER, ON EMPTY STOMACH 1 HOUR OR 2 HOUR BEFORE MEAL)
     Route: 048
     Dates: start: 20130828

REACTIONS (4)
  - Tenderness [Recovering/Resolving]
  - Rash generalised [Recovering/Resolving]
  - Erythema [Recovering/Resolving]
  - Pruritus [Recovering/Resolving]
